FAERS Safety Report 10035801 (Version 1)
Quarter: 2014Q1

REPORT INFORMATION
  Report Type: Spontaneous
  Country: US (occurrence: None)
  Receive Date: 20140306
  Receipt Date: 20140306
  Transmission Date: 20141002
  Serious: Yes (Disabling)
  Sender: FDA-Public Use
  Company Number: 163-21880-12123385

PATIENT
  Age: 75 Year
  Sex: Male
  Weight: 101.61 kg

DRUGS (9)
  1. REVLIMID (LENALIDOMIDE) (10 MILLIGRAM, CAPSULES) [Suspect]
     Indication: MYELODYSPLASTIC SYNDROME
     Dosage: 21 IN 28 D
     Route: 048
     Dates: start: 20121210, end: 20121217
  2. PROCRIT (ERYTHROPOIETIN) [Concomitant]
  3. NEUPOGEN (FILGRASTIM) [Concomitant]
  4. AMIODARONE (AMIODARONE) (TABLETS) [Concomitant]
  5. METOPROLOL TARTRATE (METOPROLOL TARTRATE) (TABLETS) (METOPROLOL TARTRATE) [Concomitant]
  6. OMEPRAZOLE (OMEPRAZOLE) (CAPSULES) [Concomitant]
  7. TYLENOL (PARACETAMOL) (TABLETS) [Concomitant]
  8. RED BLOOD CELLS (RED BLOOD CELLS) [Concomitant]
  9. PLATELETS (PLATELETS) [Concomitant]

REACTIONS (3)
  - Pancytopenia [None]
  - Myelodysplastic syndrome [None]
  - Disease progression [None]
